FAERS Safety Report 7676567-7 (Version None)
Quarter: 2011Q3

REPORT INFORMATION
  Report Type: 
  Country: None (occurrence: None)
  Receive Date: 20110811
  Receipt Date: 20110801
  Transmission Date: 20111222
  Serious: Yes (Other)
  Sender: FDA-Public Use
  Company Number: GB-UCBSA-038073

PATIENT
  Age: 39 Year
  Sex: Female

DRUGS (2)
  1. CERTOLIZUMAB [Suspect]
     Indication: CROHN'S DISEASE
     Dosage: UNKNOWN DOSE
     Route: 058
  2. CERTOLIZUMAB [Suspect]
     Indication: ARTHRITIS ENTEROPATHIC
     Dosage: UNKNOWN DOSE
     Route: 058

REACTIONS (2)
  - ABDOMINAL PAIN [None]
  - AORTIC DISSECTION [None]
